FAERS Safety Report 10043528 (Version 3)
Quarter: 2014Q2

REPORT INFORMATION
  Report Type: Spontaneous
  Country: US (occurrence: US)
  Receive Date: 20140328
  Receipt Date: 20140630
  Transmission Date: 20141212
  Serious: No
  Sender: FDA-Public Use
  Company Number: US-PFIZER INC-2014086766

PATIENT
  Age: 10 Year
  Sex: Female
  Weight: 19.5 kg

DRUGS (1)
  1. GENOTROPIN [Suspect]
     Indication: SMALL FOR DATES BABY
     Dosage: 0.9 MG, DAILY (NIGHTLY)
     Route: 058
     Dates: start: 20140323, end: 20140326

REACTIONS (6)
  - Injection site pain [Recovered/Resolved]
  - Eye pruritus [Recovered/Resolved]
  - Eye irritation [Recovered/Resolved]
  - Cough [Recovered/Resolved]
  - Throat tightness [Unknown]
  - Dyspnoea [Recovered/Resolved]
